FAERS Safety Report 22032700 (Version 1)
Quarter: 2023Q1

REPORT INFORMATION
  Report Type: Other
  Country: JP (occurrence: JP)
  Receive Date: 20230224
  Receipt Date: 20230224
  Transmission Date: 20230417
  Serious: Yes (Other)
  Sender: FDA-Public Use
  Company Number: JP-CHUGAI-2023005714

PATIENT
  Age: 62 Year
  Sex: Male
  Weight: 64.8 kg

DRUGS (1)
  1. ALECTINIB [Suspect]
     Active Substance: ALECTINIB
     Indication: Non-small cell lung cancer
     Dosage: UNK
     Route: 048
     Dates: start: 20190130, end: 20230104

REACTIONS (2)
  - Pneumonia [Recovering/Resolving]
  - Metastases to lung [Unknown]

NARRATIVE: CASE EVENT DATE: 20230104
